FAERS Safety Report 4444719-5 (Version None)
Quarter: 2004Q3

REPORT INFORMATION
  Report Type: 
  Country: None (occurrence: None)
  Receive Date: 20040902
  Receipt Date: 20040818
  Transmission Date: 20050211
  Serious: No
  Sender: FDA-Public Use
  Company Number: 04P-163-0270935-00

PATIENT

DRUGS (4)
  1. SYNTHROID [Suspect]
     Indication: THYROID NEOPLASM
     Dosage: 200 MCG, 1 IN 1 D,ORAL
     Route: 048
     Dates: start: 19920101
  2. THALIDOMIDE [Concomitant]
  3. FLUOXETINE HCL [Concomitant]
  4. LORAZEPAM [Concomitant]

REACTIONS (2)
  - METASTASES TO LUNG [None]
  - RASH PRURITIC [None]
